FAERS Safety Report 25423879 (Version 1)
Quarter: 2025Q2

REPORT INFORMATION
  Report Type: Spontaneous
  Country: US (occurrence: US)
  Receive Date: 20250611
  Receipt Date: 20250611
  Transmission Date: 20250717
  Serious: No
  Sender: PIERRE FABRE MEDICAMENT
  Company Number: US-PFM-2025-00275

PATIENT
  Age: 0 Year
  Sex: Female
  Weight: 7.61 kg

DRUGS (2)
  1. HEMANGEOL [Suspect]
     Active Substance: PROPRANOLOL HYDROCHLORIDE
     Indication: Haemangioma
     Dosage: 2.1 ML, BID (2/DAY)
     Dates: start: 20241021
  2. HEMANGEOL [Suspect]
     Active Substance: PROPRANOLOL HYDROCHLORIDE
     Dosage: 2.1 ML, QD (1/DAY)

REACTIONS (1)
  - Middle insomnia [Recovered/Resolved]

NARRATIVE: CASE EVENT DATE: 20241115
